FAERS Safety Report 13842267 (Version 1)
Quarter: 2017Q3

REPORT INFORMATION
  Report Type: Spontaneous
  Country: NL (occurrence: NL)
  Receive Date: 20170807
  Receipt Date: 20170807
  Transmission Date: 20171127
  Serious: Yes (Hospitalization)
  Sender: FDA-Public Use
  Company Number: NL-TEVA-791884ACC

PATIENT
  Age: 70 Year
  Sex: Male

DRUGS (16)
  1. TRAMADOL CAPSULE MGA 50MG [Suspect]
     Active Substance: TRAMADOL
     Indication: PAIN
     Dosage: 50 MILLIGRAM DAILY;
     Route: 048
     Dates: start: 20170717, end: 20170721
  2. CHLOORTALIDON TABLET 25MG [Concomitant]
     Dosage: 25 MILLIGRAM DAILY;
     Route: 048
     Dates: start: 20170626
  3. TRIAMCINOLONACETONIDE CREME 1MG/G [Concomitant]
     Dosage: 1 DOSAGE FORMS DAILY;
     Route: 003
     Dates: start: 20170621
  4. NIZORAL CREME 20MG/G [Concomitant]
     Dosage: 2 DOSAGE FORMS DAILY;
     Route: 003
     Dates: start: 20170621
  5. METOPROLOL TABLET MGA  50MG (SUCCINAAT) [Concomitant]
     Dosage: 50 MILLIGRAM DAILY;
     Route: 048
     Dates: start: 20170626
  6. LISINOPRIL TABLET  5MG [Concomitant]
     Dosage: 5 MILLIGRAM DAILY;
     Route: 048
     Dates: start: 20170613
  7. NITROGLYCERINE SPRAY SUBLING. 0,4MG/DO [Concomitant]
     Dosage: WHEN PAIN ON CHEST SPRAY 1-2 TIMES
     Route: 048
     Dates: start: 20161123
  8. ALLOPURINOL TABLET 100MG [Concomitant]
     Active Substance: ALLOPURINOL
     Dosage: 2 DOSAGE FORMS DAILY;
     Route: 048
     Dates: start: 20170626
  9. CLOPIDOGREL TABLET FO  75MG (WATERSTOFSULFAAT) [Concomitant]
     Dosage: 75 MILLIGRAM DAILY;
     Route: 048
     Dates: start: 20170626
  10. MONO CEDOCARD RETARD CAPSULE MGA  25MG [Concomitant]
     Dosage: 25 MILLIGRAM DAILY;
     Route: 048
     Dates: start: 20170626
  11. VITAMINE D3 2800 IE [Concomitant]
     Dosage: ONCE WEEKLY TWO CAPSULES
     Route: 048
     Dates: start: 20140515
  12. ESCITALOPRAM TABLET 10MG [Concomitant]
     Dosage: 10 MILLIGRAM DAILY;
     Route: 048
     Dates: start: 20170626
  13. CRESTOR [Concomitant]
     Active Substance: ROSUVASTATIN CALCIUM
     Dosage: 20 MILLIGRAM DAILY;
     Route: 048
     Dates: start: 20170626
  14. OMECAT CAPSULE MSR 40MG [Concomitant]
     Active Substance: OMEPRAZOLE
     Dosage: 40 MILLIGRAM DAILY;
     Route: 048
     Dates: start: 20170626
  15. IBUPROFEN TABLET 400MG [Interacting]
     Active Substance: IBUPROFEN
     Indication: BACK PAIN
     Dosage: ACCORDING TO PATIENT LEAFLET
     Route: 048
     Dates: start: 20170716, end: 20170717
  16. COLCHICINE CAPSULE 0,5MG [Concomitant]
     Dosage: .5 MILLIGRAM DAILY;
     Route: 048
     Dates: start: 20160830

REACTIONS (4)
  - Condition aggravated [None]
  - Confusional state [Not Recovered/Not Resolved]
  - Renal impairment [None]
  - Drug interaction [Not Recovered/Not Resolved]

NARRATIVE: CASE EVENT DATE: 20170717
